FAERS Safety Report 9283260 (Version 1)
Quarter: 2013Q2

REPORT INFORMATION
  Report Type: Spontaneous
  Country: US (occurrence: US)
  Receive Date: 20130510
  Receipt Date: 20130510
  Transmission Date: 20140414
  Serious: Yes (Other)
  Sender: FDA-Public Use
  Company Number: US-GLAXOSMITHKLINE-A0992948A

PATIENT
  Age: 45 Year
  Sex: Female

DRUGS (19)
  1. TYKERB [Suspect]
     Indication: BREAST CANCER METASTATIC
     Dosage: 1000MG PER DAY
     Route: 048
     Dates: start: 201203, end: 20120905
  2. HERCEPTIN [Concomitant]
  3. ARIMIDEX [Concomitant]
  4. PROCHLORPERAZINE MALEATE [Concomitant]
  5. ONDANSETRON [Concomitant]
  6. OXYCODONE-ACETAMINOPHEN [Concomitant]
  7. FLUTICASONE [Concomitant]
  8. MONTELUKAST [Concomitant]
  9. NEOMYCIN + POLYMYXIN B HYDROCORTISONE [Concomitant]
  10. SALMETEROL FLUTICASONE [Concomitant]
  11. TEMAZEPAM [Concomitant]
  12. LEVOTHYROXINE [Concomitant]
  13. PYRIDOXINE [Concomitant]
  14. OMEPRAZOLE [Concomitant]
  15. CALCIUM CARBONATE [Concomitant]
  16. VITAMIN D3 [Concomitant]
  17. TRAMADOL [Concomitant]
  18. ALBUTEROL [Concomitant]
  19. MULTIVITAMIN [Concomitant]

REACTIONS (1)
  - Hepatic enzyme increased [Unknown]
